FAERS Safety Report 5999130-2 (Version None)
Quarter: 2008Q4

REPORT INFORMATION
  Report Type: 
  Country: None (occurrence: None)
  Receive Date: 20081215
  Receipt Date: 20051201
  Transmission Date: 20090506
  Serious: Yes (Hospitalization)
  Sender: FDA-Public Use
  Company Number: DE-PFIZER INC-2005163776

PATIENT

DRUGS (13)
  1. EXEMESTANE [Suspect]
     Indication: BREAST CANCER
     Route: 048
     Dates: start: 20030915
  2. JODID [Concomitant]
     Route: 048
  3. NEBILET [Concomitant]
     Route: 048
  4. MOXONIDINE [Concomitant]
  5. OMEP [Concomitant]
     Route: 048
  6. CALCIUM [Concomitant]
     Route: 048
  7. PROTAPHAN [Concomitant]
  8. HUMALOG [Concomitant]
  9. METFORMIN HCL [Concomitant]
  10. CARMEN [Concomitant]
  11. ENALAPRIL MALEATE [Concomitant]
     Route: 048
     Dates: end: 20050901
  12. TROMLIPON [Concomitant]
     Route: 048
     Dates: end: 20050901
  13. VIGANTOLETTEN ^BAYER^ [Concomitant]
     Route: 048
     Dates: end: 20050901

REACTIONS (1)
  - DIABETES MELLITUS INADEQUATE CONTROL [None]
